FAERS Safety Report 7700195-8 (Version None)
Quarter: 2011Q3

REPORT INFORMATION
  Report Type: 
  Country: None (occurrence: None)
  Receive Date: 20110816
  Receipt Date: 20110808
  Transmission Date: 20111222
  Serious: Yes (Other)
  Sender: FDA-Public Use
  Company Number: 1000022248

PATIENT
  Age: 45 Year
  Sex: Male

DRUGS (6)
  1. AMBIEN [Suspect]
     Dosage: 10 MG PRN (10 MG,AS NEEDED),ORAL
     Route: 048
  2. DIPHENHYDRAMINE HYDROCHLORIDE [Concomitant]
  3. CAFFEINE (CAFFEINE) (CAFFEINE) [Concomitant]
  4. XANAX [Suspect]
     Indication: DEPRESSION
     Dates: start: 20090327
  5. LEXAPRO [Suspect]
     Indication: DEPRESSION
     Dates: start: 20090327
  6. ACETONE (ACETONIE) (ACETONE) [Concomitant]

REACTIONS (6)
  - ANGER [None]
  - AMNESIA [None]
  - HOMICIDE [None]
  - AGITATION [None]
  - IMPRISONMENT [None]
  - LOSS OF CONSCIOUSNESS [None]
